FAERS Safety Report 13860686 (Version 2)
Quarter: 2017Q3

REPORT INFORMATION
  Report Type: Spontaneous
  Country: GB (occurrence: ES)
  Receive Date: 20170811
  Receipt Date: 20170822
  Transmission Date: 20171127
  Serious: Yes (Life-Threatening, Other)
  Sender: FDA-Public Use
  Company Number: GB-AMGEN-GBRSP2017119148

PATIENT
  Age: 77 Year
  Sex: Female

DRUGS (11)
  1. NPLATE [Suspect]
     Active Substance: ROMIPLOSTIM
     Dosage: UNK
     Route: 065
  2. CYCLOPHOSPHAMIDE. [Suspect]
     Active Substance: CYCLOPHOSPHAMIDE
     Indication: PLATELET COUNT ABNORMAL
     Dosage: 100 MG, UNK
     Route: 065
     Dates: start: 2017
  3. ALENDRONIC ACID [Concomitant]
     Active Substance: ALENDRONIC ACID
     Dosage: UNK UNK, QWK
  4. NPLATE [Suspect]
     Active Substance: ROMIPLOSTIM
     Indication: IMMUNE THROMBOCYTOPENIC PURPURA
     Dosage: UNK
     Route: 065
     Dates: start: 2011
  5. PREDNISOLONE. [Suspect]
     Active Substance: PREDNISOLONE
     Indication: PNEUMONIA
     Dosage: 120 MG
     Route: 065
     Dates: start: 201701
  6. PREDNISOLONE. [Suspect]
     Active Substance: PREDNISOLONE
     Dosage: 2.5 MG, QWK
     Route: 065
     Dates: start: 2017
  7. ADCAL [Concomitant]
     Active Substance: CALCIUM CARBONATE
     Dosage: UNK
  8. FOSAMAX [Concomitant]
     Active Substance: ALENDRONATE SODIUM
     Dosage: UNK
  9. CYCLOPHOSPHAMIDE. [Suspect]
     Active Substance: CYCLOPHOSPHAMIDE
     Dosage: 50 MG, UNK
     Route: 065
     Dates: start: 2017
  10. FOLIC ACID. [Concomitant]
     Active Substance: FOLIC ACID
     Dosage: UNK
  11. ELTROMBOPAG [Concomitant]
     Active Substance: ELTROMBOPAG
     Dosage: UNK

REACTIONS (10)
  - Contusion [Recovering/Resolving]
  - Evans syndrome [Unknown]
  - Substance-induced psychotic disorder [Recovered/Resolved]
  - Mouth haemorrhage [Recovering/Resolving]
  - Off label use [Unknown]
  - Brain hypoxia [Recovering/Resolving]
  - Dementia [Recovering/Resolving]
  - Pneumonia [Recovering/Resolving]
  - Hypertension [Recovering/Resolving]
  - Platelet count abnormal [Recovering/Resolving]

NARRATIVE: CASE EVENT DATE: 2017
